FAERS Safety Report 8564114-7 (Version None)
Quarter: 2012Q3

REPORT INFORMATION
  Report Type: 
  Country: None (occurrence: None)
  Receive Date: 20120803
  Receipt Date: 20120723
  Transmission Date: 20120928
  Serious: Yes (Other)
  Sender: FDA-Public Use
  Company Number: BR-US-EMD SERONO, INC.-7148634

PATIENT
  Sex: Female

DRUGS (14)
  1. CYMBALTA [Suspect]
     Dosage: DOSAGE INCREASED
  2. TRAMADOL HYDROCHLORIDE [Suspect]
     Route: 048
     Dates: end: 20120501
  3. DIPYRONE TAB [Concomitant]
     Indication: PAIN
  4. KETOCONAZOLE [Concomitant]
     Indication: PAIN
  5. TIZANIDINE HYDROCHLORIDE [Concomitant]
     Indication: MUSCLE SPASMS
     Dates: start: 20120501
  6. LYRICA [Suspect]
     Route: 048
     Dates: start: 20110101
  7. AMITRIPTLINE HYDROCHLORIDE TAB [Concomitant]
     Indication: PAIN
  8. SEROQUEL [Concomitant]
     Indication: PAIN
  9. LYRICA [Suspect]
     Indication: MULTIPLE SCLEROSIS
     Route: 048
  10. TRAMADOL HYDROCHLORIDE [Suspect]
     Indication: PRODUCT USED FOR UNKNOWN INDICATION
     Route: 048
     Dates: start: 20100801
  11. TRAMADOL HCL [Concomitant]
     Indication: PAIN
  12. INTERFERON BETA NOS [Suspect]
     Indication: PAIN
  13. CYMBALTA [Suspect]
     Indication: PAIN
     Dates: start: 20110101
  14. TOPAMAX [Concomitant]
     Indication: PAIN
     Dates: start: 20090101

REACTIONS (15)
  - GAIT DISTURBANCE [None]
  - DAYDREAMING [None]
  - INFLUENZA [None]
  - INSOMNIA [None]
  - PAIN [None]
  - MUSCLE SPASMS [None]
  - ARTHROPATHY [None]
  - SOMNOLENCE [None]
  - ACTIVITIES OF DAILY LIVING IMPAIRED [None]
  - DRUG DEPENDENCE [None]
  - SPINAL COLUMN INJURY [None]
  - DRUG INEFFECTIVE [None]
  - GENERAL PHYSICAL CONDITION ABNORMAL [None]
  - SOCIAL AVOIDANT BEHAVIOUR [None]
  - FATIGUE [None]
